FAERS Safety Report 9018936 (Version 2)
Quarter: 2014Q1

REPORT INFORMATION
  Report Type: Spontaneous
  Country: NO (occurrence: NO)
  Receive Date: 20130118
  Receipt Date: 20140129
  Transmission Date: 20141002
  Serious: Yes (Hospitalization)
  Sender: FDA-Public Use
  Company Number: NO-BAYER-2013-004264

PATIENT
  Age: 55 Year
  Sex: Male

DRUGS (9)
  1. CIPROFLOXACIN MONOHYDROCHLORIDE [Suspect]
     Indication: BRONCHITIS
     Dosage: 500 MG, BID
     Dates: start: 20121219, end: 20121228
  2. RITUXIMAB [Suspect]
     Indication: NON-HODGKIN^S LYMPHOMA
     Dosage: 780 MG, UNK
     Route: 042
     Dates: start: 20120829, end: 20120829
  3. RITUXIMAB [Suspect]
     Indication: NON-HODGKIN^S LYMPHOMA
     Dosage: 1400 MG, UNK
     Route: 058
     Dates: start: 20120926, end: 20120926
  4. RITUXIMAB [Suspect]
     Indication: NON-HODGKIN^S LYMPHOMA
     Dosage: 1400 MG, UNK
     Route: 058
     Dates: start: 20121024, end: 20121024
  5. RITUXIMAB [Suspect]
     Indication: NON-HODGKIN^S LYMPHOMA
     Dosage: 1400 MG, UNK
     Route: 058
     Dates: start: 20121121, end: 20121121
  6. RITUXIMAB [Suspect]
     Indication: NON-HODGKIN^S LYMPHOMA
     Dosage: 1400 MG, UNK
     Route: 058
     Dates: start: 20130103, end: 20130103
  7. BENDAMUSTINE [Suspect]
     Indication: NON-HODGKIN^S LYMPHOMA
     Dosage: UNK
     Route: 042
     Dates: start: 20120829, end: 20130103
  8. AMOXICILLIN [Concomitant]
     Indication: BRONCHITIS
     Dosage: 1500 MG
     Dates: start: 20121025, end: 20121103
  9. DOXYCYCLIN [Concomitant]
     Indication: BRONCHITIS
     Dosage: 100 MG
     Dates: start: 20121121, end: 20121129

REACTIONS (1)
  - Febrile neutropenia [Unknown]
